FAERS Safety Report 9916940 (Version 2)
Quarter: 2014Q1

REPORT INFORMATION
  Report Type: Spontaneous
  Country: US (occurrence: US)
  Receive Date: 20140221
  Receipt Date: 20140328
  Transmission Date: 20141002
  Serious: Yes (Hospitalization)
  Sender: FDA-Public Use
  Company Number: US-BAYER-2014-027136

PATIENT
  Age: 37 Year
  Sex: Female

DRUGS (8)
  1. YASMIN [Suspect]
  2. OCELLA [Suspect]
  3. PENLAC [Concomitant]
     Dosage: 8 %, UNK
     Route: 061
  4. ITRACONAZOLE [Concomitant]
     Dosage: 100 MG, UNK
  5. BUPROPION [Concomitant]
     Dosage: 100 MG; 150 MG
  6. PREVACID [Concomitant]
     Dosage: 30 MG, QD
  7. WELLBUTRIN [Concomitant]
     Dosage: 150 MG, QD
  8. LEXAPRO [Concomitant]
     Dosage: 20 MG, QD

REACTIONS (1)
  - Cholecystitis acute [None]
